FAERS Safety Report 25916435 (Version 1)
Quarter: 2025Q4

REPORT INFORMATION
  Report Type: Report from Study
  Country: EU (occurrence: None)
  Receive Date: 20251014
  Receipt Date: 20251014
  Transmission Date: 20260117
  Serious: Yes (Hospitalization, Other)
  Sender: UCB
  Company Number: EU-UCBSA-2025063586

PATIENT
  Age: 29 Year

DRUGS (1)
  1. FENFLURAMINE HYDROCHLORIDE [Suspect]
     Active Substance: FENFLURAMINE HYDROCHLORIDE
     Indication: Epilepsy
     Dosage: 6 MILLIGRAM, 2X/DAY (BID)

REACTIONS (4)
  - Bile duct stone [Recovered/Resolved]
  - Pancreatitis acute [Recovered/Resolved]
  - Cholangitis [Recovered/Resolved]
  - Endoscopic retrograde cholangiopancreatography [Unknown]
